FAERS Safety Report 5109856-0 (Version None)
Quarter: 2006Q3

REPORT INFORMATION
  Report Type: 
  Country: None (occurrence: None)
  Receive Date: 20060918
  Receipt Date: 20060918
  Transmission Date: 20061208
  Serious: Yes (Other)
  Sender: FDA-Public Use
  Company Number: None

PATIENT
  Age: 58 Year
  Sex: Female
  Weight: 58.9676 kg

DRUGS (6)
  1. IBUPROFEN [Suspect]
     Indication: PAIN
     Dosage: 600 MG (1 TABLET)  1 TO 2 TIMES/DAY   ORAL
     Route: 048
     Dates: start: 20060721, end: 20060723
  2. IBUPROFEN [Suspect]
     Indication: POST PROCEDURAL COMPLICATION
     Dosage: 600 MG (1 TABLET)  1 TO 2 TIMES/DAY   ORAL
     Route: 048
     Dates: start: 20060721, end: 20060723
  3. VICODIN [Concomitant]
  4. EFFEXOR XR [Concomitant]
  5. KLONOPIN [Concomitant]
  6. ENABLEX [Concomitant]

REACTIONS (1)
  - RESTLESS LEGS SYNDROME [None]
